FAERS Safety Report 8369987-9 (Version None)
Quarter: 2012Q2

REPORT INFORMATION
  Report Type: 
  Country: None (occurrence: None)
  Receive Date: 20120518
  Receipt Date: 20120514
  Transmission Date: 20120825
  Serious: Yes (Death)
  Sender: FDA-Public Use
  Company Number: DE-B.I. PHARMACEUTICALS,INC./RIDGEFIELD-2012-DE-00342DE

PATIENT
  Sex: Male
  Weight: 99 kg

DRUGS (12)
  1. GLIMEPIRID [Concomitant]
     Indication: TYPE 2 DIABETES MELLITUS
     Dosage: 1 MG
  2. RIMANTADIN [Concomitant]
     Dosage: 300 MG
  3. ALLOPURINOL [Concomitant]
     Dosage: 300 MG
  4. MADOPAR LT [Concomitant]
     Indication: PARKINSON'S DISEASE
     Dosage: 4 ANZ
  5. SIMVASTATIN [Concomitant]
     Dosage: 40 MG
  6. BISOPROLOL FUMARATE [Concomitant]
     Dosage: 2.5 MG
  7. PANTOPRAZOLE [Concomitant]
     Dosage: 40 MG
  8. PRADAXA [Suspect]
     Indication: ATRIAL FIBRILLATION
     Dosage: 220 MG
     Dates: start: 20120126, end: 20120131
  9. MADOPAR DEP [Concomitant]
  10. MADOPAR DEP [Concomitant]
     Indication: PARKINSON'S DISEASE
     Dosage: 1000 MG
  11. CAPTOHEXAL [Concomitant]
     Dosage: 12.5 MG
  12. XIPAMID [Concomitant]
     Dosage: 40 MG

REACTIONS (2)
  - HAEMATEMESIS [None]
  - GASTROINTESTINAL HAEMORRHAGE [None]
